FAERS Safety Report 16699701 (Version 1)
Quarter: 2019Q3

REPORT INFORMATION
  Report Type: Spontaneous
  Country: US (occurrence: US)
  Receive Date: 20190813
  Receipt Date: 20190813
  Transmission Date: 20191004
  Serious: Yes (Hospitalization)
  Sender: FDA-Public Use
  Company Number: US-ELI_LILLY_AND_COMPANY-US201908005571

PATIENT
  Age: 57 Year
  Sex: Female

DRUGS (2)
  1. OLUMIANT [Suspect]
     Active Substance: BARICITINIB
     Indication: RHEUMATOID ARTHRITIS
     Dosage: 2 MG, UNKNOWN
     Route: 065
     Dates: start: 20190101, end: 20190119
  2. OLUMIANT [Suspect]
     Active Substance: BARICITINIB
     Indication: TUMOUR NECROSIS FACTOR RECEPTOR-ASSOCIATED PERIODIC SYNDROME

REACTIONS (2)
  - Pancytopenia [Not Recovered/Not Resolved]
  - Blastomycosis [Not Recovered/Not Resolved]

NARRATIVE: CASE EVENT DATE: 20190501
